FAERS Safety Report 6485042-7 (Version None)
Quarter: 2009Q4

REPORT INFORMATION
  Report Type: 
  Country: None (occurrence: None)
  Receive Date: 20091209
  Receipt Date: 20090611
  Transmission Date: 20100525
  Serious: No
  Sender: FDA-Public Use
  Company Number: US-AMGEN-KDL351351

PATIENT
  Sex: Female

DRUGS (2)
  1. ENBREL [Suspect]
     Indication: PSORIATIC ARTHROPATHY
     Route: 058
     Dates: start: 20061011
  2. UNSPECIFIED MEDICATION [Concomitant]

REACTIONS (4)
  - ERYTHEMA [None]
  - FALL [None]
  - SKIN ATROPHY [None]
  - SKIN LACERATION [None]
